FAERS Safety Report 7151058-0 (Version None)
Quarter: 2010Q4

REPORT INFORMATION
  Report Type: 
  Country: None (occurrence: None)
  Receive Date: 20101126
  Receipt Date: 20101115
  Transmission Date: 20110411
  Serious: Yes (Hospitalization, Other)
  Sender: FDA-Public Use
  Company Number: 2010EU005372

PATIENT
  Age: 35 Year
  Sex: Female
  Weight: 65 kg

DRUGS (4)
  1. PROTOPIC [Suspect]
     Indication: DERMATITIS ATOPIC
     Dosage: 0.1% /D, TOPICAL; 0.03% /D, TOPICAL
     Route: 061
     Dates: start: 20030708, end: 20040205
  2. PROTOPIC [Suspect]
     Indication: DERMATITIS ATOPIC
     Dosage: 0.1% /D, TOPICAL; 0.03% /D, TOPICAL
     Route: 061
     Dates: start: 20030601, end: 20100315
  3. XYZALL (LEVOCETIRIZINE) [Concomitant]
  4. NERISONE [Concomitant]

REACTIONS (1)
  - HODGKIN'S DISEASE [None]
